FAERS Safety Report 23459271 (Version 2)
Quarter: 2024Q1

REPORT INFORMATION
  Report Type: Spontaneous
  Country: US (occurrence: US)
  Receive Date: 20240131
  Receipt Date: 20240213
  Transmission Date: 20240409
  Serious: No
  Sender: FDA-Public Use
  Company Number: US-SA-SAC20240126000001

PATIENT
  Age: 53 Year
  Sex: Female

DRUGS (2)
  1. DUPIXENT [Suspect]
     Active Substance: DUPILUMAB
     Indication: Nasal polyps
     Dosage: 300 MG, QOW
     Route: 058
     Dates: start: 20231230
  2. DUPIXENT [Suspect]
     Active Substance: DUPILUMAB
     Indication: Sinusitis

REACTIONS (1)
  - Injection site nodule [Recovered/Resolved]

NARRATIVE: CASE EVENT DATE: 20231230
